FAERS Safety Report 18400965 (Version 1)
Quarter: 2020Q4

REPORT INFORMATION
  Report Type: Spontaneous
  Country: FR (occurrence: FR)
  Receive Date: 20201019
  Receipt Date: 20201019
  Transmission Date: 20210114
  Serious: Yes (Other)
  Sender: FDA-Public Use
  Company Number: FR-PFM-2020-20018

PATIENT

DRUGS (1)
  1. PROPRANOLOL [Suspect]
     Active Substance: PROPRANOLOL HYDROCHLORIDE
     Indication: HAEMANGIOMA
     Dosage: 3X15 MG, DAILY
     Route: 065

REACTIONS (6)
  - Therapeutic response unexpected [Unknown]
  - Shock [Recovering/Resolving]
  - Somnolence [Recovering/Resolving]
  - Gastroenteritis rotavirus [Recovered/Resolved]
  - Diarrhoea [Recovering/Resolving]
  - Dehydration [Recovering/Resolving]
